FAERS Safety Report 12643582 (Version 1)
Quarter: 2016Q3

REPORT INFORMATION
  Report Type: Report from Study
  Country: BR (occurrence: BR)
  Receive Date: 20160811
  Receipt Date: 20160811
  Transmission Date: 20161109
  Serious: Yes (Other)
  Sender: FDA-Public Use
  Company Number: PHHY2016BR109608

PATIENT
  Sex: Female
  Weight: 80 kg

DRUGS (2)
  1. EXELON PATCH [Suspect]
     Active Substance: RIVASTIGMINE
     Dosage: PATCH 10 (CM2), QD
     Route: 062
     Dates: start: 201502, end: 201602
  2. EXELON PATCH [Suspect]
     Active Substance: RIVASTIGMINE
     Indication: DEMENTIA ALZHEIMER^S TYPE
     Dosage: PATCH 5 (CM2), QD
     Route: 062
     Dates: end: 201502

REACTIONS (2)
  - Dementia [Unknown]
  - Drug ineffective [Unknown]
